FAERS Safety Report 16136148 (Version 1)
Quarter: 2019Q1

REPORT INFORMATION
  Report Type: Spontaneous
  Country: US (occurrence: US)
  Receive Date: 20190329
  Receipt Date: 20190329
  Transmission Date: 20190418
  Serious: No
  Sender: FDA-Public Use
  Company Number: US-TEVA-2019-US-1021253

PATIENT
  Age: 63 Year
  Sex: Female
  Weight: 63.5 kg

DRUGS (1)
  1. GABAPENTIN. [Suspect]
     Active Substance: GABAPENTIN
     Indication: NERVE INJURY
     Dosage: 2700 MILLIGRAM DAILY;
     Route: 065

REACTIONS (5)
  - Vomiting [Unknown]
  - Malaise [Unknown]
  - Agitation [Recovered/Resolved]
  - Flatulence [Unknown]
  - Fatigue [Unknown]

NARRATIVE: CASE EVENT DATE: 2011
